FAERS Safety Report 8494688-6 (Version None)
Quarter: 2012Q3

REPORT INFORMATION
  Report Type: 
  Country: None (occurrence: None)
  Receive Date: 20120709
  Receipt Date: 20120702
  Transmission Date: 20120928
  Serious: Yes (Life-Threatening, Hospitalization)
  Sender: FDA-Public Use
  Company Number: US-BAYER-201032113NA

PATIENT
  Age: 38 Year
  Sex: Female
  Weight: 136.96 kg

DRUGS (2)
  1. YAZ [Suspect]
     Route: 048
     Dates: start: 20080708, end: 20080822
  2. WELLBUTRIN [Concomitant]
     Indication: DEPRESSION

REACTIONS (3)
  - PAIN [None]
  - PULMONARY EMBOLISM [None]
  - DEEP VEIN THROMBOSIS [None]
